FAERS Safety Report 4445575-1 (Version None)
Quarter: 2004Q3

REPORT INFORMATION
  Report Type: 
  Country: None (occurrence: None)
  Receive Date: 20040902
  Receipt Date: 20040812
  Transmission Date: 20050211
  Serious: Yes (Death, Hospitalization)
  Sender: FDA-Public Use
  Company Number: EWC031136876

PATIENT
  Age: 78 Year
  Sex: Female

DRUGS (9)
  1. GEMCITABINE HYDROCHLORIDE-IV (GEMCITABINE) [Suspect]
     Indication: OVARIAN CANCER
     Dosage: 800 MG/M2/ 4XW
     Dates: start: 20030528, end: 20031030
  2. SELOZOK (METOPROLOL SUCCINATE) [Concomitant]
  3. MEDROL [Concomitant]
  4. PARIET (RABEPRAZOLE SODIUM) [Concomitant]
  5. DOCBROMAZE (BROMAZEPAM) [Concomitant]
  6. TILDIEM RETARD (DILTIAZEM HYDROCHLORIDE) [Concomitant]
  7. LASIX [Concomitant]
  8. VIOXX [Concomitant]
  9. FRAGMIN [Concomitant]

REACTIONS (3)
  - DISEASE PROGRESSION [None]
  - GENERAL PHYSICAL HEALTH DETERIORATION [None]
  - REFUSAL OF TREATMENT BY PATIENT [None]
